FAERS Safety Report 20393272 (Version 1)
Quarter: 2022Q1

REPORT INFORMATION
  Report Type: Spontaneous
  Country: DE (occurrence: DE)
  Receive Date: 20220128
  Receipt Date: 20220128
  Transmission Date: 20220423
  Serious: Yes (Other)
  Sender: FDA-Public Use
  Company Number: DE-TEVA-2022-DE-2000958

PATIENT
  Age: 67 Year
  Sex: Female

DRUGS (4)
  1. BISOPROLOL [Suspect]
     Active Substance: BISOPROLOL
     Indication: Arrhythmia
     Dosage: 5 MILLIGRAM DAILY; ONE TABLET DAILY IN THE MORNING AND EVENING
     Route: 065
     Dates: start: 2020
  2. BISOPROLOL [Suspect]
     Active Substance: BISOPROLOL
     Dosage: 5 MILLIGRAM DAILY; ONE TABLET DAILY IN THE MORNING AND EVENING
     Route: 065
     Dates: start: 2022
  3. OMEGA-3 ACIDS [Concomitant]
     Active Substance: OMEGA-3 FATTY ACIDS
     Dosage: HIGH DOSE OF OMEGA-3
  4. CRATAEGUS LAEVIGATA FRUIT [Concomitant]
     Active Substance: CRATAEGUS LAEVIGATA FRUIT

REACTIONS (13)
  - Tongue paralysis [Unknown]
  - Paralysis [Unknown]
  - Tinnitus [Not Recovered/Not Resolved]
  - Panic reaction [Unknown]
  - Restlessness [Not Recovered/Not Resolved]
  - Dizziness [Unknown]
  - Tremor [Unknown]
  - Hypertension [Unknown]
  - Migraine with aura [Recovered/Resolved]
  - Visual impairment [Unknown]
  - Vertigo [Not Recovered/Not Resolved]
  - Fatigue [Unknown]
  - Listless [Unknown]

NARRATIVE: CASE EVENT DATE: 20220101
